FAERS Safety Report 15435049 (Version 1)
Quarter: 2018Q3

REPORT INFORMATION
  Report Type: Spontaneous
  Country: US (occurrence: US)
  Receive Date: 20180924
  Receipt Date: 20180924
  Transmission Date: 20181010
  Serious: Yes (Hospitalization)
  Sender: FDA-Public Use
  Company Number: None

PATIENT
  Age: 53 Year
  Sex: Female

DRUGS (16)
  1. BEZONOTATE [Concomitant]
  2. CALC ACETATE [Concomitant]
     Active Substance: CALCIUM ACETATE
  3. ONDASETRON [Concomitant]
     Active Substance: ONDANSETRON
  4. CILOSTAZOL. [Concomitant]
     Active Substance: CILOSTAZOL
  5. FLUTICASONE. [Concomitant]
     Active Substance: FLUTICASONE
  6. IBRANCE [Suspect]
     Active Substance: PALBOCICLIB
     Indication: BREAST CANCER
     Route: 048
     Dates: start: 20160203
  7. SUCRALFATE. [Concomitant]
     Active Substance: SUCRALFATE
  8. LETROZOLE. [Concomitant]
     Active Substance: LETROZOLE
  9. FASLODEX [Concomitant]
     Active Substance: FULVESTRANT
  10. CARVEDILOL. [Concomitant]
     Active Substance: CARVEDILOL
  11. CEPHALEXIN. [Concomitant]
     Active Substance: CEPHALEXIN
  12. PANTOPRAZOLE [Concomitant]
     Active Substance: PANTOPRAZOLE
  13. ZOLPIDEM [Concomitant]
     Active Substance: ZOLPIDEM\ZOLPIDEM TARTRATE
  14. IBRANCE [Concomitant]
     Active Substance: PALBOCICLIB
  15. OMEPRAZOLE. [Concomitant]
     Active Substance: OMEPRAZOLE
  16. SENNA [Concomitant]
     Active Substance: SENNA LEAF\SENNOSIDES\SENNOSIDES A AND B

REACTIONS (2)
  - Oesophageal disorder [None]
  - Inflammation [None]

NARRATIVE: CASE EVENT DATE: 20180905
